FAERS Safety Report 25908063 (Version 1)
Quarter: 2025Q4

REPORT INFORMATION
  Report Type: Spontaneous
  Country: JP (occurrence: JP)
  Receive Date: 20251010
  Receipt Date: 20251010
  Transmission Date: 20260117
  Serious: Yes (Death)
  Sender: SERVIER
  Company Number: JP-SERVIER-S25014460

PATIENT

DRUGS (1)
  1. TIBSOVO [Suspect]
     Active Substance: IVOSIDENIB
     Indication: Product used for unknown indication
     Dosage: 250 MG
     Route: 048
     Dates: start: 2025, end: 2025

REACTIONS (1)
  - Infection [Fatal]

NARRATIVE: CASE EVENT DATE: 20250101
